FAERS Safety Report 5467170-8 (Version None)
Quarter: 2007Q3

REPORT INFORMATION
  Report Type: 
  Country: None (occurrence: None)
  Receive Date: 20070925
  Receipt Date: 20070914
  Transmission Date: 20080115
  Serious: Yes (Death)
  Sender: FDA-Public Use
  Company Number: US-AMGEN-STX242497

PATIENT
  Sex: Male

DRUGS (5)
  1. ENBREL [Suspect]
     Indication: RHEUMATOID ARTHRITIS
     Route: 058
     Dates: start: 20010611, end: 20061001
  2. METHOTREXATE [Concomitant]
     Route: 065
     Dates: start: 19850101
  3. FOLIC ACID [Concomitant]
     Route: 065
  4. NAPROSYN [Concomitant]
     Route: 065
  5. AMOXICILLIN [Concomitant]

REACTIONS (2)
  - ANXIETY [None]
  - METASTATIC MALIGNANT MELANOMA [None]
